FAERS Safety Report 8148662 (Version 3)
Quarter: 2014Q2

REPORT INFORMATION
  Report Type: Spontaneous
  Country: US (occurrence: US)
  Receive Date: 20110922
  Receipt Date: 20140508
  Transmission Date: 20141212
  Serious: No
  Sender: FDA-Public Use
  Company Number: US-ASTRAZENECA-2011SE12837

PATIENT
  Age: 47 Year
  Sex: Male

DRUGS (1)
  1. SEROQUEL XR [Suspect]
     Route: 048

REACTIONS (5)
  - Rhinorrhoea [Unknown]
  - Multiple allergies [Unknown]
  - Dysphonia [Unknown]
  - Bipolar disorder [Unknown]
  - Drug dose omission [Not Recovered/Not Resolved]
